FAERS Safety Report 8309689-8 (Version None)
Quarter: 2012Q2

REPORT INFORMATION
  Report Type: 
  Country: None (occurrence: None)
  Receive Date: 20120425
  Receipt Date: 20120418
  Transmission Date: 20120825
  Serious: Yes (Hospitalization)
  Sender: FDA-Public Use
  Company Number: NZ-ACCORD-013186

PATIENT
  Sex: Female

DRUGS (9)
  1. OMEPRAZOLE [Concomitant]
  2. PARACETAMOL [Concomitant]
     Dosage: AS REQUIRED
  3. PREDNISONE [Suspect]
     Indication: IMMUNOSUPPRESSION
     Dosage: 12.5 MG TAPERING REGIME. 5 MG AT 17 MONTHS POST TRANSPLANT.
  4. MESALAMINE [Suspect]
     Indication: IMMUNOSUPPRESSION
  5. TACROLIMUS [Suspect]
     Indication: IMMUNOSUPPRESSION
     Dosage: STARTED 3 MG BD AND THEN 2 MG BD.
  6. PIZOTIFEN MALEATE [Concomitant]
  7. MYCOPHENOLATE MOFETIL [Suspect]
     Indication: IMMUNOSUPPRESSION
     Dosage: RESTARTED 1 G BD.
  8. AMITRIPTYLINE HYDROCHLORIDE [Concomitant]
  9. MORPHINE [Concomitant]
     Dosage: INTERMITTENTLY

REACTIONS (2)
  - CLOSTRIDIUM DIFFICILE COLITIS [None]
  - COLITIS ULCERATIVE [None]
